FAERS Safety Report 8993628 (Version 1)
Quarter: 2013Q1

REPORT INFORMATION
  Report Type: Spontaneous
  Country: GR (occurrence: GR)
  Receive Date: 20130102
  Receipt Date: 20130102
  Transmission Date: 20140127
  Serious: Yes (Other)
  Sender: FDA-Public Use
  Company Number: PHHY2012GR120342

PATIENT
  Sex: 0

DRUGS (2)
  1. STALEVO [Suspect]
     Indication: PARKINSON^S DISEASE
     Route: 048
  2. BETA BLOCKING AGENTS [Concomitant]
     Dosage: 1 DF, BID

REACTIONS (1)
  - Heart rate decreased [Recovered/Resolved]
